FAERS Safety Report 7878594-3 (Version None)
Quarter: 2011Q4

REPORT INFORMATION
  Report Type: 
  Country: None (occurrence: None)
  Receive Date: 20111101
  Receipt Date: 20111101
  Transmission Date: 20120403
  Serious: Yes (Other)
  Sender: FDA-Public Use
  Company Number: None

PATIENT
  Age: 16 Year
  Sex: Female
  Weight: 49.895 kg

DRUGS (3)
  1. ABILIFY [Suspect]
     Indication: AFFECTIVE DISORDER
     Dosage: 5MG
     Route: 048
     Dates: start: 20111027, end: 20111029
  2. LEXAPRO [Concomitant]
     Route: 048
  3. AMITRYPTILLINE [Concomitant]
     Route: 048

REACTIONS (2)
  - DYSKINESIA [None]
  - PAIN [None]
